FAERS Safety Report 4512161-4 (Version None)
Quarter: 2004Q4

REPORT INFORMATION
  Report Type: 
  Country: None (occurrence: None)
  Receive Date: 20041123
  Receipt Date: 20041026
  Transmission Date: 20050328
  Serious: Yes (Death, Hospitalization)
  Sender: FDA-Public Use
  Company Number: 2004-BP-10706BR

PATIENT
  Age: 76 Year
  Sex: Male

DRUGS (5)
  1. SPIRIVA [Suspect]
     Indication: CHRONIC OBSTRUCTIVE AIRWAYS DISEASE
     Dosage: (18 MCG,) IH
     Route: 055
     Dates: start: 20030101, end: 20040101
  2. SERETIDE (SALMETEROL XINAFOATE/FLUTICASONE PROPIONATE) (NR) [Concomitant]
  3. ATROVENT [Concomitant]
  4. CORTICOIDE (CORTICOID) (NR) [Concomitant]
  5. ANTIBIOTICS (ANTIBIOTICS) (NR) [Concomitant]

REACTIONS (2)
  - GASTROINTESTINAL DISORDER [None]
  - HEPATIC NEOPLASM MALIGNANT [None]
